FAERS Safety Report 13022369 (Version 2)
Quarter: 2017Q1

REPORT INFORMATION
  Report Type: Report from Study
  Country: CO (occurrence: CO)
  Receive Date: 20161213
  Receipt Date: 20170120
  Transmission Date: 20170428
  Serious: Yes (Hospitalization, Other)
  Sender: FDA-Public Use
  Company Number: PHHY2016CO050572

PATIENT
  Sex: Female
  Weight: 44 kg

DRUGS (5)
  1. AFINITOR [Suspect]
     Active Substance: EVEROLIMUS
     Dosage: 10 MG, QD
     Route: 048
     Dates: start: 20151022
  2. EXEMESTANE. [Concomitant]
     Active Substance: EXEMESTANE
     Indication: PRODUCT USED FOR UNKNOWN INDICATION
     Route: 065
  3. AFINITOR [Suspect]
     Active Substance: EVEROLIMUS
     Indication: BREAST CANCER METASTATIC
     Dosage: 5 MG, BID
     Route: 048
     Dates: start: 20150924, end: 20160331
  4. AFINITOR [Suspect]
     Active Substance: EVEROLIMUS
     Dosage: UNK
     Route: 048
     Dates: start: 20160412
  5. ANASTROZOL [Concomitant]
     Active Substance: ANASTROZOLE
     Indication: PRODUCT USED FOR UNKNOWN INDICATION
     Dosage: UNK
     Route: 065

REACTIONS (15)
  - Arthralgia [Unknown]
  - Spinal pain [Unknown]
  - Inflammation [Unknown]
  - Decreased immune responsiveness [Unknown]
  - Stomatitis [Unknown]
  - Vomiting [Unknown]
  - Malignant neoplasm progression [Unknown]
  - Pharyngitis [Unknown]
  - Painful respiration [Unknown]
  - Decreased appetite [Unknown]
  - Weight decreased [Unknown]
  - Drug ineffective [Unknown]
  - Gait disturbance [Unknown]
  - Cough [Unknown]
  - Headache [Unknown]
